FAERS Safety Report 4866592-3 (Version None)
Quarter: 2005Q4

REPORT INFORMATION
  Report Type: 
  Country: None (occurrence: None)
  Receive Date: 20051221
  Receipt Date: 20051209
  Transmission Date: 20060501
  Serious: Yes (Death, Other)
  Sender: FDA-Public Use
  Company Number: 2005149177

PATIENT
  Age: 53 Year
  Sex: Male

DRUGS (3)
  1. ACCUPRIL [Suspect]
     Indication: BLOOD PRESSURE
  2. CLOZAPINE [Suspect]
     Indication: SCHIZOPHRENIA
     Dates: start: 19980101
  3. HYDROCHLOROTHIAZIDE [Concomitant]

REACTIONS (6)
  - ABNORMAL BEHAVIOUR [None]
  - CONSTIPATION [None]
  - CONVULSION [None]
  - DROOLING [None]
  - DRUG TOXICITY [None]
  - MALAISE [None]
